FAERS Safety Report 7183015-2 (Version None)
Quarter: 2010Q4

REPORT INFORMATION
  Report Type: 
  Country: None (occurrence: None)
  Receive Date: 20101222
  Receipt Date: 20101216
  Transmission Date: 20110411
  Serious: No
  Sender: FDA-Public Use
  Company Number: US-PFIZER INC-2010174018

PATIENT
  Sex: Male
  Weight: 104.31 kg

DRUGS (6)
  1. VIAGRA [Suspect]
     Indication: ERECTILE DYSFUNCTION
     Dosage: 50 MG, AS NEEDED
     Route: 048
     Dates: start: 20101215
  2. PLAVIX [Concomitant]
     Dosage: 75 MG, UNK
  3. METOPROLOL [Concomitant]
     Dosage: 30 MG, UNK
  4. MEGESTROL [Concomitant]
     Dosage: 40 MG, UNK
  5. SIMVASTATIN [Concomitant]
     Dosage: UNK
  6. CLONAZEPAM [Concomitant]
     Dosage: UNK

REACTIONS (1)
  - DRUG INEFFECTIVE [None]
